FAERS Safety Report 7122521-3 (Version None)
Quarter: 2010Q4

REPORT INFORMATION
  Report Type: 
  Country: None (occurrence: None)
  Receive Date: 20101122
  Receipt Date: 20101122
  Transmission Date: 20110411
  Serious: Yes (Other)
  Sender: FDA-Public Use
  Company Number: None

PATIENT
  Sex: Female
  Weight: 114.8 kg

DRUGS (6)
  1. IXABEPILONE [Suspect]
     Indication: BREAST CANCER
     Dosage: 20 MG/M2 IV DAYS 2, 9, 16
     Route: 042
  2. VORINOSTAT [Suspect]
     Indication: BREAST CANCER
     Dosage: 300MG DAILY
  3. AMBIEN [Concomitant]
  4. LEVOXYL [Concomitant]
  5. METFORMIN [Concomitant]
  6. MORPHINE SULFATE [Concomitant]

REACTIONS (2)
  - DIZZINESS [None]
  - HEADACHE [None]
